FAERS Safety Report 5371542-X (Version None)
Quarter: 2007Q2

REPORT INFORMATION
  Report Type: 
  Country: None (occurrence: None)
  Receive Date: 20070625
  Receipt Date: 20070625
  Transmission Date: 20071010
  Serious: Yes (Hospitalization)
  Sender: FDA-Public Use
  Company Number: None

PATIENT
  Age: 38 Year
  Sex: Male

DRUGS (2)
  1. INSULIN [Suspect]
     Indication: DIABETES MELLITUS
     Dosage: 90 UNITS BID SQ
     Route: 058
     Dates: start: 19941201
  2. INSULIN [Suspect]
     Indication: DIABETES MELLITUS
     Dosage: UNITS TID SQ
     Route: 058

REACTIONS (5)
  - ANOREXIA [None]
  - HYPOGLYCAEMIA [None]
  - NAUSEA [None]
  - ORAL INTAKE REDUCED [None]
  - VOMITING [None]
